FAERS Safety Report 25552815 (Version 1)
Quarter: 2025Q3

REPORT INFORMATION
  Report Type: Spontaneous
  Country: US (occurrence: US)
  Receive Date: 20250715
  Receipt Date: 20250715
  Transmission Date: 20251021
  Serious: Yes (Hospitalization, Other)
  Sender: DR REDDYS
  Company Number: US-DRL-USA-USA/2025/07/010182

PATIENT
  Age: 38 Year
  Sex: Female

DRUGS (6)
  1. CYCLOPHOSPHAMIDE [Suspect]
     Active Substance: CYCLOPHOSPHAMIDE
     Indication: Pemphigus
  2. MYCOPHENOLATE MOFETIL [Concomitant]
     Active Substance: MYCOPHENOLATE MOFETIL
     Indication: Pemphigus
  3. AZATHIOPRINE [Concomitant]
     Active Substance: AZATHIOPRINE
     Indication: Pemphigus
  4. METHOTREXATE [Concomitant]
     Active Substance: METHOTREXATE
     Indication: Pemphigus
  5. HUMAN IMMUNOGLOBULIN G [Concomitant]
     Active Substance: HUMAN IMMUNOGLOBULIN G
     Indication: Pemphigus
     Route: 042
  6. DAPSONE [Concomitant]
     Active Substance: DAPSONE
     Indication: Pemphigus
     Dosage: 2 G/KG EVERY 4 WEEKS

REACTIONS (2)
  - Drug ineffective for unapproved indication [Unknown]
  - Product dose omission issue [Unknown]
